FAERS Safety Report 6366093-X (Version None)
Quarter: 2009Q3

REPORT INFORMATION
  Report Type: 
  Country: None (occurrence: None)
  Receive Date: 20090920
  Receipt Date: 20090311
  Transmission Date: 20100115
  Serious: No
  Sender: FDA-Public Use
  Company Number: US-BAUSCH-2009BL001091

PATIENT
  Age: 40 Year
  Sex: Female

DRUGS (2)
  1. NEOMYCIN AND POLYMXIN B SULFATES AND HYDROCORTISONE [Suspect]
     Route: 047
     Dates: start: 20090309, end: 20090309
  2. CIPROFLAXACIN [Concomitant]

REACTIONS (3)
  - EYE IRRITATION [None]
  - MEDICATION ERROR [None]
  - OCULAR HYPERAEMIA [None]
